FAERS Safety Report 22858278 (Version 2)
Quarter: 2023Q4

REPORT INFORMATION
  Report Type: Spontaneous
  Country: FI (occurrence: FI)
  Receive Date: 20230824
  Receipt Date: 20231023
  Transmission Date: 20240109
  Serious: Yes (Other)
  Sender: FDA-Public Use
  Company Number: FI-JNJFOC-20230850258

PATIENT
  Sex: Male

DRUGS (1)
  1. ZYTIGA [Suspect]
     Active Substance: ABIRATERONE ACETATE
     Indication: Hormone-refractory prostate cancer
     Route: 048
     Dates: start: 20220108, end: 20221013

REACTIONS (2)
  - Tongue neoplasm malignant stage unspecified [Unknown]
  - Off label use [Unknown]

NARRATIVE: CASE EVENT DATE: 20230701
